FAERS Safety Report 4725107-0 (Version None)
Quarter: 2005Q3

REPORT INFORMATION
  Report Type: 
  Country: None (occurrence: None)
  Receive Date: 20050722
  Receipt Date: 20050711
  Transmission Date: 20060218
  Serious: Yes (Other)
  Sender: FDA-Public Use
  Company Number: 2005BI002064

PATIENT
  Age: 57 Year
  Sex: Female

DRUGS (8)
  1. AVONEX [Suspect]
     Indication: MULTIPLE SCLEROSIS
     Dosage: 30 UG; QW IM
     Route: 030
     Dates: start: 20000101
  2. AVONEX [Suspect]
     Indication: MULTIPLE SCLEROSIS
     Dosage: 30 UG; QW IM
     Route: 030
     Dates: start: 20030101
  3. LIORESAL [Concomitant]
  4. LASIX [Concomitant]
  5. MACRODANTIN [Concomitant]
  6. LORAZEPAM [Concomitant]
  7. PAXIL [Concomitant]
  8. SOMA [Concomitant]

REACTIONS (2)
  - BREAST CANCER [None]
  - RADIATION INJURY [None]
